FAERS Safety Report 23975528 (Version 2)
Quarter: 2024Q4

REPORT INFORMATION
  Report Type: Spontaneous
  Country: US (occurrence: US)
  Receive Date: 20240614
  Receipt Date: 20241018
  Transmission Date: 20250115
  Serious: No
  Sender: UCB
  Company Number: US-UCBSA-2024022230

PATIENT
  Sex: Male
  Weight: 84.82 kg

DRUGS (1)
  1. BIMZELX [Suspect]
     Active Substance: BIMEKIZUMAB-BKZX
     Indication: Psoriasis
     Dosage: 320 MILLIGRAM, EV 4 WEEKS AT WEEKS 0,4,8,12 + 16 + THEN EVERY 8 WEEKS
     Route: 058

REACTIONS (2)
  - Acne [Not Recovered/Not Resolved]
  - Affective disorder [Not Recovered/Not Resolved]
